FAERS Safety Report 6437200-5 (Version None)
Quarter: 2009Q4

REPORT INFORMATION
  Report Type: 
  Country: None (occurrence: None)
  Receive Date: 20091112
  Receipt Date: 20090803
  Transmission Date: 20100525
  Serious: No
  Sender: FDA-Public Use
  Company Number: A0800127A

PATIENT
  Age: 57 Year
  Sex: Male

DRUGS (5)
  1. TREXIMET [Suspect]
     Indication: MIGRAINE
     Route: 048
     Dates: start: 20090801, end: 20090801
  2. IMITREX [Concomitant]
  3. OXYCONTIN [Concomitant]
  4. ELAVIL [Concomitant]
  5. PROZAC [Concomitant]

REACTIONS (2)
  - DRUG INEFFECTIVE [None]
  - OVERDOSE [None]
